FAERS Safety Report 9937140 (Version 1)
Quarter: 2014Q1

REPORT INFORMATION
  Report Type: Spontaneous
  Country: IT (occurrence: IT)
  Receive Date: 20140301
  Receipt Date: 20140301
  Transmission Date: 20141002
  Serious: Yes (Other)
  Sender: FDA-Public Use
  Company Number: PHHY2014IT023605

PATIENT
  Age: 57 Year
  Sex: Male

DRUGS (4)
  1. RIBAVIRIN [Suspect]
     Dosage: 1000 MG, PER DAY
  2. BOCEPREVIR [Suspect]
     Dosage: 800 MG, TID
  3. PEGINTERFERON ALFA-2A [Suspect]
     Dosage: 180 UG, WEEKLY
  4. ERYTHROPOETIN [Concomitant]
     Indication: ANAEMIA

REACTIONS (3)
  - Grand mal convulsion [Recovered/Resolved]
  - Loss of consciousness [Recovered/Resolved]
  - Drug ineffective [Unknown]
